FAERS Safety Report 6286584-X (Version None)
Quarter: 2009Q3

REPORT INFORMATION
  Report Type: 
  Country: None (occurrence: None)
  Receive Date: 20090728
  Receipt Date: 20090716
  Transmission Date: 20100115
  Serious: Yes (Other)
  Sender: FDA-Public Use
  Company Number: GB-ELI_LILLY_AND_COMPANY-GB200907003261

PATIENT
  Age: 78 Year
  Sex: Male
  Weight: 120 kg

DRUGS (1)
  1. BYETTA [Suspect]
     Dosage: 10 MG, 2/D
     Route: 048
     Dates: start: 20081226, end: 20090117

REACTIONS (6)
  - ABDOMINAL DISTENSION [None]
  - DIARRHOEA [None]
  - HALLUCINATION [None]
  - INCORRECT ROUTE OF DRUG ADMINISTRATION [None]
  - VOMITING [None]
  - WEIGHT DECREASED [None]
